FAERS Safety Report 9774763 (Version 3)
Quarter: 2014Q1

REPORT INFORMATION
  Report Type: Report from Study
  Country: JP (occurrence: JP)
  Receive Date: 20131220
  Receipt Date: 20140123
  Transmission Date: 20141002
  Serious: Yes (Disabling)
  Sender: FDA-Public Use
  Company Number: JP-ROCHE-1318864

PATIENT
  Age: 66 Year
  Sex: Male
  Weight: 75.4 kg

DRUGS (9)
  1. BEVACIZUMAB [Suspect]
     Indication: NON-SMALL CELL LUNG CANCER
     Dosage: DATE OF LAST DOSE PRIOR TO SAE 01/NOV/2013
     Route: 042
     Dates: start: 20131101, end: 20131120
  2. DOCETAXEL [Suspect]
     Indication: NON-SMALL CELL LUNG CANCER
     Route: 042
     Dates: start: 20131101, end: 20131120
  3. AMLODIPINE BESILATE [Concomitant]
     Route: 065
     Dates: start: 2006
  4. GLIMEPIRIDE [Concomitant]
     Route: 065
     Dates: start: 2006
  5. VALSARTAN [Concomitant]
     Route: 065
     Dates: start: 2006
  6. LANSOPRAZOLE [Concomitant]
     Route: 065
     Dates: start: 2006
  7. MIGLITOL [Concomitant]
     Route: 065
     Dates: start: 2006
  8. LOXOPROFEN SODIUM [Concomitant]
     Route: 065
     Dates: start: 20130601, end: 20131125
  9. LEVOFLOXACIN HYDRATE [Concomitant]
     Route: 065
     Dates: start: 20131112, end: 20131123

REACTIONS (1)
  - Interstitial lung disease [Not Recovered/Not Resolved]
